FAERS Safety Report 19274742 (Version 2)
Quarter: 2021Q3

REPORT INFORMATION
  Report Type: Spontaneous
  Country: US (occurrence: US)
  Receive Date: 20210519
  Receipt Date: 20210804
  Transmission Date: 20211014
  Serious: Yes (Other)
  Sender: FDA-Public Use
  Company Number: US-PFIZER INC-2021513766

PATIENT
  Age: 67 Year
  Sex: Female

DRUGS (1)
  1. XALKORI [Suspect]
     Active Substance: CRIZOTINIB
     Dosage: 200 MG
     Dates: start: 2017

REACTIONS (3)
  - Jaw fracture [Unknown]
  - Diabetes mellitus [Unknown]
  - Weight decreased [Unknown]
